FAERS Safety Report 6731709-2 (Version None)
Quarter: 2010Q2

REPORT INFORMATION
  Report Type: 
  Country: None (occurrence: None)
  Receive Date: 20100519
  Receipt Date: 20100510
  Transmission Date: 20101027
  Serious: Yes (Hospitalization)
  Sender: FDA-Public Use
  Company Number: CA-JNJFOC-20100504481

PATIENT
  Sex: Male
  Weight: 61.6 kg

DRUGS (3)
  1. REMICADE [Suspect]
     Indication: CROHN'S DISEASE
     Dosage: EVERY 6-7 WEEKS
     Route: 042
  2. REMICADE [Suspect]
     Dosage: EVERY 6-7 WEEKS
     Route: 042
  3. AZATHIOPRINE [Concomitant]

REACTIONS (2)
  - BLADDER OPERATION [None]
  - INTESTINAL OPERATION [None]
